FAERS Safety Report 18685332 (Version 2)
Quarter: 2021Q1

REPORT INFORMATION
  Report Type: Report from Study
  Country: US (occurrence: US)
  Receive Date: 20201230
  Receipt Date: 20210121
  Transmission Date: 20210419
  Serious: No
  Sender: FDA-Public Use
  Company Number: US-SUNOVION-2020SUN003804

PATIENT
  Age: 60 Year
  Sex: Male

DRUGS (6)
  1. KYNMOBI [Suspect]
     Active Substance: APOMORPHINE HYDROCHLORIDE
     Dosage: 15 MG
     Route: 060
  2. KYNMOBI [Suspect]
     Active Substance: APOMORPHINE HYDROCHLORIDE
     Dosage: 10 MG
     Route: 060
     Dates: start: 20210109, end: 20210109
  3. KYNMOBI [Suspect]
     Active Substance: APOMORPHINE HYDROCHLORIDE
     Indication: PARKINSON^S DISEASE
     Dosage: 30 MG
     Route: 060
  4. KYNMOBI [Suspect]
     Active Substance: APOMORPHINE HYDROCHLORIDE
     Dosage: 10 MG
     Route: 060
  5. KYNMOBI [Suspect]
     Active Substance: APOMORPHINE HYDROCHLORIDE
     Dosage: 25 MG
     Route: 060
  6. KYNMOBI [Suspect]
     Active Substance: APOMORPHINE HYDROCHLORIDE
     Dosage: 20 MG
     Route: 060

REACTIONS (5)
  - Dizziness [Unknown]
  - Hypotension [Unknown]
  - Feeling cold [Recovered/Resolved]
  - Spontaneous penile erection [Recovered/Resolved]
  - Excessive masturbation [Recovered/Resolved]

NARRATIVE: CASE EVENT DATE: 20210109
